FAERS Safety Report 16722270 (Version 1)
Quarter: 2019Q3

REPORT INFORMATION
  Report Type: Report from Study
  Country: US (occurrence: US)
  Receive Date: 20190820
  Receipt Date: 20190820
  Transmission Date: 20191005
  Serious: No
  Sender: FDA-Public Use
  Company Number: PHEH2019US034398

PATIENT
  Sex: Male

DRUGS (1)
  1. ENTRESTO [Suspect]
     Active Substance: SACUBITRIL\VALSARTAN
     Indication: CARDIAC FAILURE
     Dosage: 1 DF, (97 MG SACUBITRIL / 103 MG VALSARTAN), BID
     Route: 048

REACTIONS (2)
  - Ventricular extrasystoles [Unknown]
  - Ejection fraction decreased [Unknown]
